FAERS Safety Report 4768202-2 (Version None)
Quarter: 2005Q3

REPORT INFORMATION
  Report Type: 
  Country: None (occurrence: None)
  Receive Date: 20050914
  Receipt Date: 20050706
  Transmission Date: 20060218
  Serious: Yes (Death, Other)
  Sender: FDA-Public Use
  Company Number: HK-ABBOTT-05P-075-0305497-00

PATIENT
  Age: 68 Year
  Sex: Male

DRUGS (8)
  1. CLARITHROMYCIN [Suspect]
     Indication: PNEUMONIA
     Route: 048
     Dates: start: 19991012, end: 19991021
  2. COLCHICINE [Interacting]
     Indication: GOUT
     Route: 048
     Dates: start: 19991015, end: 19991022
  3. ADALAT [Concomitant]
     Indication: HYPERTENSION
  4. DEXTROPROPOXYPHENE HYDROCHLORIDE [Concomitant]
     Indication: ARTHRALGIA
     Dates: start: 19991019, end: 19991025
  5. SODIUM CHLORIDE [Concomitant]
     Indication: HYPONATRAEMIA
     Dates: start: 19991019, end: 19991025
  6. FAMOTIDINE [Concomitant]
     Indication: ANTACID THERAPY
  7. AMOXICILLIN AND CLAVULANATE POTASSIUM [Concomitant]
     Indication: PNEUMONIA
     Route: 042
     Dates: start: 19991012, end: 19991013
  8. PAPICILLIN-TAZOBACTAM [Concomitant]
     Indication: PNEUMONIA
     Route: 042
     Dates: start: 19991013, end: 19991021

REACTIONS (7)
  - DIARRHOEA [None]
  - DRUG INTERACTION [None]
  - DRUG TOXICITY [None]
  - GOUT [None]
  - NAUSEA [None]
  - PANCYTOPENIA [None]
  - VOMITING [None]
